FAERS Safety Report 9920265 (Version 2)
Quarter: 2014Q1

REPORT INFORMATION
  Report Type: Spontaneous
  Country: US (occurrence: US)
  Receive Date: 20140224
  Receipt Date: 20140312
  Transmission Date: 20141002
  Serious: Yes (Death, Hospitalization)
  Sender: FDA-Public Use
  Company Number: US-ACTELION-A-US2014-95036

PATIENT
  Age: 74 Year
  Sex: Female

DRUGS (1)
  1. TRACLEER [Suspect]
     Indication: COR PULMONALE CHRONIC
     Dosage: UNK
     Route: 048
     Dates: end: 20140202

REACTIONS (5)
  - Acute respiratory failure [Fatal]
  - Diastolic dysfunction [Fatal]
  - Renal tubular necrosis [Fatal]
  - Gastrointestinal haemorrhage [Fatal]
  - Deep vein thrombosis [Fatal]
